FAERS Safety Report 8079071-X (Version None)
Quarter: 2012Q1

REPORT INFORMATION
  Report Type: 
  Country: None (occurrence: None)
  Receive Date: 20120128
  Receipt Date: 20110817
  Transmission Date: 20120608
  Serious: No
  Sender: FDA-Public Use
  Company Number: US-ABBOTT-11P-163-0847685-00

PATIENT
  Age: 54 Year
  Sex: Male

DRUGS (3)
  1. NEW INJECTABLE [Concomitant]
     Indication: PRODUCT USED FOR UNKNOWN INDICATION
     Dates: start: 20110629
  2. HUMIRA [Suspect]
     Indication: PSORIASIS
     Dates: start: 20090101, end: 20110629
  3. UNKNOWN PRESCRIPTION INHALER [Concomitant]
     Indication: ASTHMA
     Dosage: ONCE IN THE MORNING, ONCE IN THE EVENING
     Route: 055

REACTIONS (3)
  - HYPERTENSION [None]
  - PSORIASIS [None]
  - WEIGHT DECREASED [None]
